FAERS Safety Report 20032761 (Version 1)
Quarter: 2021Q4

REPORT INFORMATION
  Report Type: Report from Study
  Country: US (occurrence: US)
  Receive Date: 20211104
  Receipt Date: 20211104
  Transmission Date: 20220303
  Serious: Yes (Other)
  Sender: FDA-Public Use
  Company Number: US-ABBVIE-21K-163-4141081-00

PATIENT
  Age: 53 Year
  Sex: Female

DRUGS (2)
  1. HUMIRA [Suspect]
     Active Substance: ADALIMUMAB
     Indication: Rheumatoid arthritis
     Dosage: CITRATE FREE
     Route: 058
  2. COVID-19 VACCINE [Concomitant]
     Indication: COVID-19 immunisation

REACTIONS (5)
  - Phaeochromocytoma [Unknown]
  - Osteoporosis [Unknown]
  - Bone pain [Unknown]
  - Fibromyalgia [Unknown]
  - Hyperparathyroidism [Unknown]

NARRATIVE: CASE EVENT DATE: 20200901
